FAERS Safety Report 21010935 (Version 1)
Quarter: 2022Q2

REPORT INFORMATION
  Report Type: Spontaneous
  Country: GB (occurrence: GB)
  Receive Date: 20220627
  Receipt Date: 20220627
  Transmission Date: 20220721
  Serious: Yes (Death, Hospitalization, Other)
  Sender: FDA-Public Use
  Company Number: None

PATIENT

DRUGS (1)
  1. LAMOTRIGINE [Suspect]
     Active Substance: LAMOTRIGINE
     Indication: Partial seizures
     Dosage: UNK
     Route: 065

REACTIONS (8)
  - Multiple organ dysfunction syndrome [Fatal]
  - Brain oedema [Unknown]
  - Renal failure [Unknown]
  - Respiratory failure [Unknown]
  - Haemophagocytic lymphohistiocytosis [Unknown]
  - Rash erythematous [Unknown]
  - Tachycardia [Unknown]
  - Pyrexia [Unknown]
